FAERS Safety Report 23223156 (Version 2)
Quarter: 2023Q4

REPORT INFORMATION
  Report Type: Report from Study
  Country: US (occurrence: US)
  Receive Date: 20231123
  Receipt Date: 20231213
  Transmission Date: 20240110
  Serious: Yes (Hospitalization)
  Sender: FDA-Public Use
  Company Number: US-TAIHO-2023-001221

PATIENT
  Age: 72 Year
  Sex: Female

DRUGS (8)
  1. LONSURF [Suspect]
     Active Substance: TIPIRACIL HYDROCHLORIDE\TRIFLURIDINE
     Indication: Colon cancer
     Dosage: CYCLE 1?TAKE 3 TABLETS EVERY MORNING MONDAY TO FRIDAY AND 2 TABLETS EVERY EVENING MONDAY TO THURSDAY
     Route: 048
     Dates: start: 20210618
  2. LONSURF [Suspect]
     Active Substance: TIPIRACIL HYDROCHLORIDE\TRIFLURIDINE
     Dosage: 3 TABLETS, TWICE DAILY (STRENGTH NOT PROVIDED). CYCLE UNKNOWN.
     Route: 048
     Dates: start: 20220801
  3. ALPRAZOLAM [Concomitant]
     Active Substance: ALPRAZOLAM
     Indication: Product used for unknown indication
  4. METOPROLOL [Concomitant]
     Active Substance: METOPROLOL
     Indication: Product used for unknown indication
     Dosage: ER
  5. OMEPRAZOLE [Concomitant]
     Active Substance: OMEPRAZOLE
     Indication: Product used for unknown indication
  6. TYLENOL [Concomitant]
     Active Substance: ACETAMINOPHEN
     Indication: Product used for unknown indication
  7. XARELTO [Concomitant]
     Active Substance: RIVAROXABAN
     Indication: Product used for unknown indication
  8. XARELTO [Concomitant]
     Active Substance: RIVAROXABAN

REACTIONS (5)
  - Disease progression [Unknown]
  - Back pain [Not Recovered/Not Resolved]
  - Musculoskeletal injury [Unknown]
  - Inappropriate schedule of product administration [Unknown]
  - White blood cell count decreased [Not Recovered/Not Resolved]
